FAERS Safety Report 7791473-5 (Version None)
Quarter: 2011Q4

REPORT INFORMATION
  Report Type: 
  Country: None (occurrence: None)
  Receive Date: 20111003
  Receipt Date: 20110923
  Transmission Date: 20120403
  Serious: Yes (Hospitalization)
  Sender: FDA-Public Use
  Company Number: BR-US-EMD SERONO, INC.-7081823

PATIENT
  Sex: Male

DRUGS (9)
  1. GLICAMIM [Concomitant]
  2. PROLOPA [Concomitant]
  3. GABAPENTINE [Concomitant]
  4. WARFARIN SODIUM [Concomitant]
  5. SIMVASTATIN [Concomitant]
  6. SOTALOL HYDROCHLORIDE [Concomitant]
  7. REBIF [Suspect]
     Indication: PRODUCT USED FOR UNKNOWN INDICATION
     Dates: start: 20050825
  8. LOSARTAN POTASSIUM [Concomitant]
  9. PANTOPRAZOLE [Concomitant]

REACTIONS (9)
  - PAIN IN EXTREMITY [None]
  - PAIN [None]
  - OSTEOPOROSIS [None]
  - BLOOD GLUCOSE INCREASED [None]
  - ABASIA [None]
  - MUSCLE SPASMS [None]
  - FATIGUE [None]
  - NEUROGENIC BLADDER [None]
  - BURNING SENSATION [None]
